FAERS Safety Report 6716819-8 (Version None)
Quarter: 2010Q2

REPORT INFORMATION
  Report Type: 
  Country: None (occurrence: None)
  Receive Date: 20100510
  Receipt Date: 20100423
  Transmission Date: 20101027
  Serious: Yes (Other)
  Sender: FDA-Public Use
  Company Number: US-BAYER-200939484NA

PATIENT
  Sex: Female
  Weight: 54 kg

DRUGS (1)
  1. YAZ [Suspect]
     Indication: CONTRACEPTION
     Route: 048
     Dates: start: 20070701, end: 20070901

REACTIONS (6)
  - ASTHENIA [None]
  - DYSPNOEA [None]
  - HYPOAESTHESIA [None]
  - INJURY [None]
  - PULMONARY EMBOLISM [None]
  - VISION BLURRED [None]
